FAERS Safety Report 15453314 (Version 1)
Quarter: 2018Q4

REPORT INFORMATION
  Report Type: Spontaneous
  Country: JP (occurrence: JP)
  Receive Date: 20181001
  Receipt Date: 20181001
  Transmission Date: 20190204
  Serious: Yes (Hospitalization, Disabling)
  Sender: FDA-Public Use
  Company Number: JP-TERSERA THERAPEUTICS LLC-TSR2018001806

PATIENT

DRUGS (5)
  1. TAMOXIFEN [Concomitant]
     Active Substance: TAMOXIFEN
     Indication: BREAST CANCER FEMALE
     Dosage: BAYER
     Route: 048
     Dates: start: 20151028, end: 20170201
  2. ZOLADEX [Suspect]
     Active Substance: GOSERELIN ACETATE
     Indication: BREAST CANCER FEMALE
     Dosage: 3.6 MILLIGRAM, Q4 WEEKS
     Route: 058
     Dates: start: 20150902, end: 20151028
  3. ZOLADEX [Suspect]
     Active Substance: GOSERELIN ACETATE
     Dosage: 10.8 MILLIGRAM, Q12 WEEKS
     Route: 058
     Dates: start: 20151125, end: 20180419
  4. TASUOMIN [Concomitant]
     Active Substance: TAMOXIFEN CITRATE
     Indication: BREAST CANCER FEMALE
     Dosage: 20 MILLIGRAM, UNK
     Route: 048
     Dates: start: 20150805, end: 20151027
  5. TAMOXIFEN [Concomitant]
     Active Substance: TAMOXIFEN
     Dosage: MYL
     Route: 048
     Dates: start: 20170202

REACTIONS (2)
  - Uterine leiomyoma [Recovered/Resolved]
  - Uterine haemorrhage [Recovered/Resolved]

NARRATIVE: CASE EVENT DATE: 20180705
